FAERS Safety Report 8487194 (Version 2)
Quarter: 2012Q4

REPORT INFORMATION
  Report Type: 
  Country: US (occurrence: US)
  Receive Date: 20120402
  Receipt Date: 20121022
  Transmission Date: 20130627
  Serious: Yes (Hospitalization, Other)
  Sender: FDA-Public Use
  Company Number: US-ASTRAZENECA-2010SE60051

PATIENT
  Age: 63 Year
  Sex: Female

DRUGS (2)
  1. NEXIUM [Suspect]
     Route: 048
  2. PRILOSEC [Suspect]
     Route: 048

REACTIONS (6)
  - Cardiac failure [Unknown]
  - Breast cancer [Unknown]
  - Cardiac disorder [Unknown]
  - Dyspepsia [Unknown]
  - Nausea [Unknown]
  - Drug ineffective [Unknown]
